FAERS Safety Report 25154873 (Version 1)
Quarter: 2025Q2

REPORT INFORMATION
  Report Type: Spontaneous
  Country: US (occurrence: None)
  Receive Date: 20250403
  Receipt Date: 20250403
  Transmission Date: 20250716
  Serious: Yes (Hospitalization)
  Sender: FDA-CTU
  Company Number: None

PATIENT
  Age: 36 Year
  Sex: Male
  Weight: 96.2 kg

DRUGS (6)
  1. CARBOPLATIN [Suspect]
     Active Substance: CARBOPLATIN
     Dates: end: 20200216
  2. ETOPOSIDE [Suspect]
     Active Substance: ETOPOSIDE
     Dates: end: 20200216
  3. FILGRASTIM [Suspect]
     Active Substance: FILGRASTIM
     Dates: end: 20200127
  4. IFOSFAMIDE [Suspect]
     Active Substance: IFOSFAMIDE
     Dates: end: 20200129
  5. TAXOL [Suspect]
     Active Substance: PACLITAXEL
     Dates: end: 20200127
  6. NEULASTA [Suspect]
     Active Substance: PEGFILGRASTIM
     Dates: end: 20200217

REACTIONS (4)
  - Pyrexia [None]
  - Chills [None]
  - Blood creatinine increased [None]
  - C-reactive protein increased [None]

NARRATIVE: CASE EVENT DATE: 20200304
